FAERS Safety Report 8726889 (Version 2)
Quarter: 2013Q1

REPORT INFORMATION
  Report Type: Spontaneous
  Country: US (occurrence: US)
  Receive Date: 20120816
  Receipt Date: 20130110
  Transmission Date: 20140127
  Serious: Yes (Hospitalization)
  Sender: FDA-Public Use
  Company Number: US-B.I. PHARMACEUTICALS,INC./RIDGEFIELD-2012-BP-18722BP

PATIENT
  Sex: Male
  Weight: 98.88 kg

DRUGS (14)
  1. PRADAXA [Suspect]
     Indication: ANTICOAGULANT THERAPY
     Dosage: 300 MG
     Route: 048
     Dates: start: 20111224, end: 20120220
  2. PRADAXA [Suspect]
     Indication: ATRIAL FIBRILLATION
  3. AVODART [Concomitant]
     Dosage: 0.5 MG
     Route: 048
     Dates: start: 2005
  4. PLAVIX [Concomitant]
     Dosage: 75 MG
     Dates: start: 2005
  5. FLOMAX [Concomitant]
     Dosage: 0.4 MG
     Dates: start: 2005
  6. POTASSIUM CHLORIDE [Concomitant]
     Dosage: 20 MEQ
     Route: 048
     Dates: start: 2005
  7. LIPITOR [Concomitant]
     Dosage: 10 MG
     Route: 048
     Dates: start: 2005
  8. NIFEDIPINE [Concomitant]
     Dates: start: 2005
  9. NEXIUM [Concomitant]
     Dosage: 40 MG
     Route: 048
     Dates: start: 2005
  10. ASPIRIN [Concomitant]
     Dosage: 81 MG
     Route: 048
     Dates: start: 2005
  11. CATAPRES [Concomitant]
     Dosage: 0.4 MG
  12. RYTHMOL SR [Concomitant]
     Dosage: 450 MG
  13. ATROVENT [Concomitant]
     Route: 055
  14. ANTIVERT [Concomitant]
     Dosage: 25 MG

REACTIONS (2)
  - Gastrointestinal haemorrhage [Unknown]
  - Haemorrhagic anaemia [Unknown]
